FAERS Safety Report 9650108 (Version 1)
Quarter: 2013Q4

REPORT INFORMATION
  Report Type: Spontaneous
  Country: US (occurrence: US)
  Receive Date: 20131028
  Receipt Date: 20131028
  Transmission Date: 20140711
  Serious: Yes (Other)
  Sender: FDA-Public Use
  Company Number: US-NAPPMUNDI-USA-2012-0097214

PATIENT
  Sex: Male

DRUGS (4)
  1. OXYCONTIN (NDA 22-272) [Suspect]
     Indication: DRUG ABUSE
     Route: 048
  2. MARIJUANA [Suspect]
     Indication: DRUG ABUSE
  3. COCAINE [Suspect]
     Indication: DRUG ABUSE
  4. HEROIN [Suspect]
     Indication: DRUG ABUSE

REACTIONS (2)
  - Drug dependence [Recovering/Resolving]
  - Substance abuse [Recovering/Resolving]
